FAERS Safety Report 7251387-6 (Version None)
Quarter: 2011Q1

REPORT INFORMATION
  Report Type: 
  Country: None (occurrence: None)
  Receive Date: 20110119
  Receipt Date: 20110118
  Transmission Date: 20110831
  Serious: Yes (Other)
  Sender: FDA-Public Use
  Company Number: 1000014565

PATIENT
  Age: 54 Year
  Sex: Male

DRUGS (11)
  1. LEXAPRO [Suspect]
     Indication: ANXIETY
     Dosage: (10 MG (10 MG, 1 IN 1 D), ORAL) (5 MG (5 MG, 1 IN 1 D), ORAL) (2.5 MG (2.5 MG, 1 IN 1 D), ORAL) (10
     Route: 048
     Dates: start: 20100101, end: 20100101
  2. LEXAPRO [Suspect]
     Indication: ANXIETY
     Dosage: (10 MG (10 MG, 1 IN 1 D), ORAL) (5 MG (5 MG, 1 IN 1 D), ORAL) (2.5 MG (2.5 MG, 1 IN 1 D), ORAL) (10
     Route: 048
     Dates: start: 20100101, end: 20100101
  3. LEXAPRO [Suspect]
     Indication: ANXIETY
     Dosage: (10 MG (10 MG, 1 IN 1 D), ORAL) (5 MG (5 MG, 1 IN 1 D), ORAL) (2.5 MG (2.5 MG, 1 IN 1 D), ORAL) (10
     Route: 048
     Dates: start: 20100101, end: 20100101
  4. LEXAPRO [Suspect]
     Indication: ANXIETY
     Dosage: (10 MG (10 MG, 1 IN 1 D), ORAL) (5 MG (5 MG, 1 IN 1 D), ORAL) (2.5 MG (2.5 MG, 1 IN 1 D), ORAL) (10
     Route: 048
     Dates: start: 20100701
  5. LEXAPRO [Suspect]
     Indication: ANXIETY
     Dosage: (10 MG (10 MG, 1 IN 1 D), ORAL) (5 MG (5 MG, 1 IN 1 D), ORAL) (2.5 MG (2.5 MG, 1 IN 1 D), ORAL) (10
     Route: 048
     Dates: start: 20090501, end: 20100201
  6. LEXAPRO [Suspect]
     Indication: ANXIETY
     Dosage: (10 MG (10 MG, 1 IN 1 D), ORAL) (5 MG (5 MG, 1 IN 1 D), ORAL) (2.5 MG (2.5 MG, 1 IN 1 D), ORAL) (10
     Route: 048
     Dates: start: 20100101, end: 20100101
  7. LEXAPRO [Suspect]
     Indication: ANXIETY
     Dosage: (10 MG (10 MG, 1 IN 1 D), ORAL) (5 MG (5 MG, 1 IN 1 D), ORAL) (2.5 MG (2.5 MG, 1 IN 1 D), ORAL) (10
     Route: 048
     Dates: start: 20100201, end: 20100201
  8. LEXAPRO [Suspect]
     Indication: ANXIETY
     Dosage: (10 MG (10 MG, 1 IN 1 D), ORAL) (5 MG (5 MG, 1 IN 1 D), ORAL) (2.5 MG (2.5 MG, 1 IN 1 D), ORAL) (10
     Route: 048
     Dates: start: 20100201, end: 20100201
  9. LYRICA [Concomitant]
  10. PROZAC [Concomitant]
  11. NASACORT (TRIAMCINOLONE ACETONIDE) (TRIAMCINOLONE ACETONIDE) [Concomitant]

REACTIONS (11)
  - DEPRESSION [None]
  - VISION BLURRED [None]
  - CHILLS [None]
  - DEAFNESS UNILATERAL [None]
  - PARAESTHESIA [None]
  - TINNITUS [None]
  - NIGHT SWEATS [None]
  - EXAGGERATED STARTLE RESPONSE [None]
  - TEMPOROMANDIBULAR JOINT SYNDROME [None]
  - PANIC ATTACK [None]
  - DRY MOUTH [None]
